FAERS Safety Report 5928789-0 (Version None)
Quarter: 2008Q4

REPORT INFORMATION
  Report Type: 
  Country: None (occurrence: None)
  Receive Date: 20081020
  Receipt Date: 20060918
  Transmission Date: 20090506
  Serious: Yes (Hospitalization)
  Sender: FDA-Public Use
  Company Number: 2006-00858FE

PATIENT
  Age: 35 Year
  Sex: Male

DRUGS (6)
  1. HCG (HCG) [Suspect]
     Indication: PROTEIN ANABOLISM INCREASED
     Dosage: 3, IM
     Route: 030
  2. OXYMETHOLONE (0XYMETHOLONE) [Suspect]
     Indication: PROTEIN ANABOLISM INCREASED
     Dosage: IM
     Route: 030
  3. TESTOSTERONE ENANTHATE [Suspect]
     Indication: PROTEIN ANABOLISM INCREASED
     Dosage: 1, 2; IM
     Route: 030
  4. AMOXICILLIN [Concomitant]
  5. ACETAMINOPHEN W/ CODEINE [Concomitant]
  6. IBUPROFEN [Concomitant]

REACTIONS (12)
  - ALANINE AMINOTRANSFERASE INCREASED [None]
  - ASPARTATE AMINOTRANSFERASE INCREASED [None]
  - BLOOD ALKALINE PHOSPHATASE INCREASED [None]
  - BLOOD BILIRUBIN INCREASED [None]
  - CHROMATURIA [None]
  - EYE DISORDER [None]
  - HEADACHE [None]
  - NAUSEA [None]
  - PAIN [None]
  - PRURITUS [None]
  - PYREXIA [None]
  - SERUM FERRITIN INCREASED [None]
